FAERS Safety Report 21147455 (Version 1)
Quarter: 2022Q3

REPORT INFORMATION
  Report Type: Report from Study
  Country: EG (occurrence: EG)
  Receive Date: 20220729
  Receipt Date: 20220729
  Transmission Date: 20221027
  Serious: Yes (Other)
  Sender: FDA-Public Use
  Company Number: EG-BAYER-2022A092545

PATIENT
  Sex: Female

DRUGS (7)
  1. EYLEA [Suspect]
     Active Substance: AFLIBERCEPT
     Indication: Diabetic retinal oedema
     Dosage: UNK, 40MG/ML, SOLUTION FOR INJECTION
     Route: 031
     Dates: start: 20200122, end: 20200122
  2. EYLEA [Suspect]
     Active Substance: AFLIBERCEPT
     Dosage: RIGHT EYE, 40MG/ML, SOLUTION FOR INJECTION
     Route: 031
     Dates: start: 202204
  3. INSULIN NOS [Concomitant]
     Active Substance: INSULIN NOS
     Indication: Diabetes mellitus
     Dosage: 20 UNITS AT MORNING AND 25 UNITS AT NIGHT
  4. MELLITOFIX MET [Concomitant]
     Indication: Diabetes mellitus
     Dosage: 1 DF, BID  (ONE TAB AFTER BREAKFAST -ONE TAB AFTER LUNCH)
  5. ATACAND [Concomitant]
     Active Substance: CANDESARTAN CILEXETIL
     Indication: Hypertension
     Dosage: ONCE DAILY
  6. ATACAND [Concomitant]
     Active Substance: CANDESARTAN CILEXETIL
     Dosage: ONCE DAILY
  7. BENFOTIAMINE\CYANOCOBALAMIN\PYRIDOXINE HYDROCHLORIDE [Concomitant]
     Active Substance: BENFOTIAMINE\CYANOCOBALAMIN\PYRIDOXINE HYDROCHLORIDE
     Indication: Vitamin supplementation
     Dosage: 2 DF, QD

REACTIONS (3)
  - Blindness [Unknown]
  - Hypoglycaemia [Recovered/Resolved]
  - Vision blurred [Recovered/Resolved]

NARRATIVE: CASE EVENT DATE: 20220201
